FAERS Safety Report 8379486-6 (Version None)
Quarter: 2012Q2

REPORT INFORMATION
  Report Type: 
  Country: None (occurrence: None)
  Receive Date: 20120522
  Receipt Date: 20120522
  Transmission Date: 20120825
  Serious: Yes (Other)
  Sender: FDA-Public Use
  Company Number: None

PATIENT
  Age: 45 Year
  Sex: Male

DRUGS (1)
  1. SIMPONI [Suspect]
     Dosage: 50MG QM SQ
     Route: 058
     Dates: start: 20120402, end: 20120502

REACTIONS (1)
  - PHOTOPHOBIA [None]
